FAERS Safety Report 13568782 (Version 1)
Quarter: 2017Q2

REPORT INFORMATION
  Report Type: Spontaneous
  Country: US (occurrence: US)
  Receive Date: 20170522
  Receipt Date: 20170522
  Transmission Date: 20170830
  Serious: No
  Sender: FDA-Public Use
  Company Number: US-NEOS THERAPEUTICS, LP-2017NEO00029

PATIENT
  Age: 10 Year
  Sex: Male
  Weight: 38.55 kg

DRUGS (7)
  1. ADZENYS XR-ODT [Suspect]
     Active Substance: AMPHETAMINE
     Indication: OPPOSITIONAL DEFIANT DISORDER
  2. KLONOPIN [Concomitant]
     Active Substance: CLONAZEPAM
  3. ADZENYS XR-ODT [Suspect]
     Active Substance: AMPHETAMINE
     Indication: ATTENTION DEFICIT/HYPERACTIVITY DISORDER
     Dosage: 9.4 MG, 1X/DAY
     Route: 048
     Dates: start: 2017
  4. ADZENYS XR-ODT [Suspect]
     Active Substance: AMPHETAMINE
     Indication: OPPOSITIONAL DEFIANT DISORDER
     Dosage: 9.4 MG, 2X/DAY
  5. CLONIDINE. [Concomitant]
     Active Substance: CLONIDINE
  6. ADDERALL [Suspect]
     Active Substance: AMPHETAMINE ASPARTATE\AMPHETAMINE SULFATE\DEXTROAMPHETAMINE SACCHARATE\DEXTROAMPHETAMINE SULFATE
     Dosage: UNK
     Dates: start: 2017, end: 2017
  7. ADZENYS XR-ODT [Suspect]
     Active Substance: AMPHETAMINE
     Indication: ATTENTION DEFICIT/HYPERACTIVITY DISORDER
     Dosage: 12.5 MG, 2X/DAY
     Route: 048
     Dates: start: 201702, end: 2017

REACTIONS (8)
  - Therapeutic response decreased [Not Recovered/Not Resolved]
  - Aggression [Not Recovered/Not Resolved]
  - Insomnia [Unknown]
  - Weight decreased [Unknown]
  - Off label use [Not Recovered/Not Resolved]
  - Off label use [Not Recovered/Not Resolved]
  - Hypophagia [Unknown]
  - Abnormal behaviour [Not Recovered/Not Resolved]

NARRATIVE: CASE EVENT DATE: 2017
